FAERS Safety Report 18926433 (Version 1)
Quarter: 2021Q1

REPORT INFORMATION
  Report Type: Other
  Country: US (occurrence: US)
  Receive Date: 20210223
  Receipt Date: 20210223
  Transmission Date: 20210420
  Serious: Yes (Death, Other)
  Sender: FDA-Public Use
  Company Number: US-ROCHE-2774773

PATIENT

DRUGS (1)
  1. CAPECITABINE. [Suspect]
     Active Substance: CAPECITABINE
     Indication: RECTAL CANCER
     Route: 048

REACTIONS (4)
  - Pelvic abscess [Unknown]
  - Female genital tract fistula [Recovering/Resolving]
  - Female genital tract fistula [Unknown]
  - Pelvic haemorrhage [Fatal]
